FAERS Safety Report 4813331-8 (Version None)
Quarter: 2005Q4

REPORT INFORMATION
  Report Type: 
  Country: None (occurrence: None)
  Receive Date: 20051028
  Receipt Date: 20050503
  Transmission Date: 20060501
  Serious: No
  Sender: FDA-Public Use
  Company Number: US-GLAXOSMITHKLINE-A0557070A

PATIENT
  Age: 39 Year
  Sex: Male

DRUGS (5)
  1. ADVAIR DISKUS 100/50 [Suspect]
     Indication: BRONCHITIS
     Dosage: 1PUFF TWICE PER DAY
     Route: 055
     Dates: start: 20050302
  2. ACCUPRIL [Concomitant]
  3. NEXIUM [Concomitant]
  4. BENADRYL [Concomitant]
  5. MUCINEX [Concomitant]

REACTIONS (7)
  - BLOOD PRESSURE INCREASED [None]
  - FEELING JITTERY [None]
  - NERVOUSNESS [None]
  - OVERDOSE [None]
  - PARAESTHESIA [None]
  - PARAESTHESIA ORAL [None]
  - THROAT TIGHTNESS [None]
